FAERS Safety Report 4463454-0 (Version None)
Quarter: 2004Q3

REPORT INFORMATION
  Report Type: 
  Country: None (occurrence: None)
  Receive Date: 20040928
  Receipt Date: 20040924
  Transmission Date: 20050211
  Serious: Yes (Other)
  Sender: FDA-Public Use
  Company Number: ENTC2004-0136

PATIENT

DRUGS (1)
  1. STALEVO 100 [Suspect]
     Dosage: ORAL
     Route: 048

REACTIONS (1)
  - MYELODYSPLASTIC SYNDROME [None]
